FAERS Safety Report 13263982 (Version 1)
Quarter: 2017Q1

REPORT INFORMATION
  Report Type: Spontaneous
  Country: US (occurrence: US)
  Receive Date: 20170222
  Receipt Date: 20170222
  Transmission Date: 20170428
  Serious: Yes (Life-Threatening, Hospitalization)
  Sender: FDA-Public Use
  Company Number: None

PATIENT
  Age: 74 Year
  Sex: Male
  Weight: 129.5 kg

DRUGS (1)
  1. VANCOMYCIN [Suspect]
     Active Substance: VANCOMYCIN
     Indication: SURGERY
     Route: 042
     Dates: start: 20170221, end: 20170221

REACTIONS (4)
  - Urticaria [None]
  - Pruritus [None]
  - Cardiac arrest [None]
  - Anaphylactic reaction [None]

NARRATIVE: CASE EVENT DATE: 20170221
